FAERS Safety Report 5289636-6 (Version None)
Quarter: 2007Q2

REPORT INFORMATION
  Report Type: 
  Country: None (occurrence: None)
  Receive Date: 20070406
  Receipt Date: 20070327
  Transmission Date: 20071010
  Serious: Yes (Other)
  Sender: FDA-Public Use
  Company Number: 2007AP01994

PATIENT
  Sex: Male

DRUGS (5)
  1. CRESTOR [Suspect]
     Route: 048
  2. PLAVIX [Concomitant]
     Dates: start: 20061001
  3. ACETYLSALICYLIC ACID SRT [Concomitant]
     Dates: start: 20061001
  4. TRITACE [Concomitant]
  5. AMIODARONE HCL [Concomitant]

REACTIONS (3)
  - BLOOD THYROID STIMULATING HORMONE DECREASED [None]
  - HYPERTHYROIDISM [None]
  - TRI-IODOTHYRONINE INCREASED [None]
